FAERS Safety Report 4724784-8 (Version None)
Quarter: 2005Q3

REPORT INFORMATION
  Report Type: 
  Country: None (occurrence: None)
  Receive Date: 20050726
  Receipt Date: 20050721
  Transmission Date: 20060218
  Serious: Yes (Hospitalization)
  Sender: FDA-Public Use
  Company Number: J200502210

PATIENT
  Age: 22 Year
  Sex: Female

DRUGS (2)
  1. SAWACILLIN [Suspect]
     Indication: TOOTH EXTRACTION
     Dosage: 250MG THREE TIMES PER DAY
     Route: 048
     Dates: start: 20041217, end: 20041217
  2. KYORIN AP2 [Concomitant]
     Indication: TOOTH EXTRACTION
     Dosage: 2.5MG PER DAY
     Route: 048
     Dates: start: 20041217, end: 20041217

REACTIONS (5)
  - ERYTHEMA [None]
  - GENERALISED ERYTHEMA [None]
  - HOT FLUSH [None]
  - PYREXIA [None]
  - RASH [None]
